FAERS Safety Report 18270287 (Version 1)
Quarter: 2020Q3

REPORT INFORMATION
  Report Type: Report from Study
  Country: US (occurrence: US)
  Receive Date: 20200915
  Receipt Date: 20200915
  Transmission Date: 20201103
  Serious: Yes (Other)
  Sender: FDA-Public Use
  Company Number: US-TAKEDA-2020TUS038301

PATIENT
  Age: 30 Year
  Sex: Female
  Weight: 84.37 kg

DRUGS (10)
  1. PREDNISONE. [Concomitant]
     Active Substance: PREDNISONE
     Indication: COLITIS ULCERATIVE
     Dosage: UNK
     Route: 048
  2. TYLENOL EXTRA STRENGTH [Concomitant]
     Active Substance: ACETAMINOPHEN
     Indication: HEADACHE
     Dosage: UNK
     Route: 048
     Dates: start: 20200628
  3. NALTREXONE HCL [Concomitant]
     Active Substance: NALTREXONE HYDROCHLORIDE
     Indication: ABDOMINAL PAIN UPPER
     Dosage: 4.5 MILLIGRAM, QD
     Route: 048
     Dates: start: 20190415
  4. MAGNESIUM [Concomitant]
     Active Substance: MAGNESIUM
     Indication: MIGRAINE PROPHYLAXIS
     Dosage: 200 MILLIGRAM, BID
     Dates: start: 20200628
  5. BUDESONIDE. [Concomitant]
     Active Substance: BUDESONIDE
     Indication: COLITIS ULCERATIVE
     Dosage: UNK
     Route: 048
  6. ZYRTEC [Concomitant]
     Active Substance: CETIRIZINE HYDROCHLORIDE
     Indication: HYPERSENSITIVITY
     Dosage: UNK, QD
     Route: 048
     Dates: start: 20200628
  7. VITAMIN B2                         /00154901/ [Concomitant]
     Active Substance: RIBOFLAVIN
     Indication: MIGRAINE PROPHYLAXIS
     Dosage: 400 MILLIGRAM, BID
     Route: 048
     Dates: start: 20200628
  8. VITAMIN B6 [Concomitant]
     Active Substance: PYRIDOXINE HYDROCHLORIDE
     Indication: NAUSEA
     Dosage: 50 MILLIGRAM
     Route: 048
     Dates: start: 20200816, end: 20200823
  9. VEDOLIZUMAB [Suspect]
     Active Substance: VEDOLIZUMAB
     Indication: COLITIS ULCERATIVE
     Dosage: 300 MILLIGRAM
     Route: 042
     Dates: start: 20190715
  10. OMEGA 3                            /01333901/ [Concomitant]
     Active Substance: FISH OIL\TOCOPHEROL
     Indication: SUPPLEMENTATION THERAPY
     Dosage: 3000 MILLIGRAM, QD
     Route: 048
     Dates: start: 20200628

REACTIONS (4)
  - Nausea [Unknown]
  - Hypersensitivity [Unknown]
  - Pregnancy [Unknown]
  - Migraine [Unknown]

NARRATIVE: CASE EVENT DATE: 20200628
